FAERS Safety Report 15615485 (Version 9)
Quarter: 2021Q4

REPORT INFORMATION
  Report Type: Spontaneous
  Country: JP (occurrence: JP)
  Receive Date: 20181114
  Receipt Date: 20211206
  Transmission Date: 20220303
  Serious: Yes (Death, Life-Threatening, Hospitalization, Disabling, Other)
  Sender: FDA-Public Use
  Company Number: JP-MSD-M2018-32984

PATIENT
  Sex: Male
  Weight: 56 kg

DRUGS (1)
  1. KEYTRUDA [Suspect]
     Active Substance: PEMBROLIZUMAB
     Indication: Malignant melanoma
     Dosage: 111 MILLIGRAM, Q3W
     Route: 041
     Dates: start: 20180926, end: 20180926

REACTIONS (7)
  - Acute hepatic failure [Not Recovered/Not Resolved]
  - Disseminated intravascular coagulation [Unknown]
  - Malignant neoplasm progression [Fatal]
  - Platelet count decreased [Not Recovered/Not Resolved]
  - Pneumonia [Not Recovered/Not Resolved]
  - Pleural effusion [Not Recovered/Not Resolved]
  - Visual acuity reduced [Not Recovered/Not Resolved]

NARRATIVE: CASE EVENT DATE: 20180101
